FAERS Safety Report 5325512-8 (Version None)
Quarter: 2007Q2

REPORT INFORMATION
  Report Type: 
  Country: None (occurrence: None)
  Receive Date: 20070515
  Receipt Date: 20070506
  Transmission Date: 20071010
  Serious: Yes (Death)
  Sender: FDA-Public Use
  Company Number: EG-SANOFI-SYNTHELABO-A01200704755

PATIENT
  Sex: Male

DRUGS (4)
  1. AGGRASTAT [Concomitant]
     Indication: PERCUTANEOUS CORONARY INTERVENTION
     Dosage: UNK
     Route: 065
     Dates: start: 20070401
  2. AGGRASTAT [Concomitant]
     Indication: STENT PLACEMENT
     Dosage: UNK
     Route: 065
     Dates: start: 20070401
  3. SUSPECTED COUNTERFEIT OF PLAVIX [Suspect]
     Indication: PERCUTANEOUS CORONARY INTERVENTION
     Dosage: UNK
     Route: 048
     Dates: start: 20070422
  4. SUSPECTED COUNTERFEIT OF PLAVIX [Suspect]
     Indication: STENT PLACEMENT
     Dosage: UNK
     Route: 048
     Dates: start: 20070422

REACTIONS (3)
  - ACUTE MYOCARDIAL INFARCTION [None]
  - PHARMACEUTICAL PRODUCT COUNTERFEIT [None]
  - THROMBOSIS IN DEVICE [None]
